FAERS Safety Report 5366910-6 (Version None)
Quarter: 2007Q2

REPORT INFORMATION
  Report Type: 
  Country: None (occurrence: None)
  Receive Date: 20070622
  Receipt Date: 20070327
  Transmission Date: 20071010
  Serious: No
  Sender: FDA-Public Use
  Company Number: US-ASTRAZENECA-2007UW06143

PATIENT
  Age: 81 Year
  Sex: Male
  Weight: 70.3 kg

DRUGS (4)
  1. RHINOCORT [Suspect]
     Route: 045
  2. FLOMAX [Concomitant]
  3. BEDACASE [Concomitant]
  4. EYE DROPS [Concomitant]

REACTIONS (1)
  - DIZZINESS [None]
